FAERS Safety Report 16170552 (Version 2)
Quarter: 2019Q2

REPORT INFORMATION
  Report Type: Spontaneous
  Country: JP (occurrence: JP)
  Receive Date: 20190408
  Receipt Date: 20190530
  Transmission Date: 20190711
  Serious: Yes (Other)
  Sender: FDA-Public Use
  Company Number: JP-PFIZER INC-2019139045

PATIENT
  Age: 68 Year
  Sex: Male

DRUGS (1)
  1. VIBRAMYCIN [Suspect]
     Active Substance: DOXYCYCLINE
     Indication: CUTANEOUS SYMPTOM
     Dosage: UNK
     Route: 048

REACTIONS (4)
  - Feeling hot [Recovering/Resolving]
  - Autonomic neuropathy [Recovering/Resolving]
  - Late onset hypogonadism syndrome [Recovering/Resolving]
  - Insomnia [Recovering/Resolving]
